FAERS Safety Report 11952591 (Version 2)
Quarter: 2016Q1

REPORT INFORMATION
  Report Type: Report from Study
  Country: US (occurrence: US)
  Receive Date: 20160126
  Receipt Date: 20160226
  Transmission Date: 20160526
  Serious: Yes (Other)
  Sender: FDA-Public Use
  Company Number: US-BAYER-2016-010739

PATIENT
  Age: 63 Year
  Sex: Male

DRUGS (8)
  1. NEXAVAR [Suspect]
     Active Substance: SORAFENIB
     Indication: HEPATOCELLULAR CARCINOMA
     Dosage: 200 MG TAB
     Dates: start: 20160108, end: 20160111
  2. MORPHINE SULFATE. [Concomitant]
     Active Substance: MORPHINE SULFATE
     Dosage: TAB 15 MG
  3. AMOXICILLIN. [Concomitant]
     Active Substance: AMOXICILLIN
     Dosage: CAP 500 MG
  4. CLONIDINE. [Concomitant]
     Active Substance: CLONIDINE
     Dosage: TAB 0.2 MG
  5. PANTOPRAZOLE [Concomitant]
     Active Substance: PANTOPRAZOLE SODIUM
     Dosage: TAB 40 MG
  6. OXYCODONE [Concomitant]
     Active Substance: OXYCODONE
     Dosage: TAB 5 MG
  7. NEXAVAR [Suspect]
     Active Substance: SORAFENIB
     Indication: METASTASES TO BONE
     Dosage: USE AS DIRECTED BY PHYSICIAN
  8. GABAPENTIN. [Concomitant]
     Active Substance: GABAPENTIN
     Dosage: TAB 600 MG

REACTIONS (6)
  - Pyrexia [Not Recovered/Not Resolved]
  - Cough [Not Recovered/Not Resolved]
  - Tremor [Not Recovered/Not Resolved]
  - Gastrooesophageal reflux disease [Not Recovered/Not Resolved]
  - Chills [Not Recovered/Not Resolved]
  - Fatigue [Not Recovered/Not Resolved]

NARRATIVE: CASE EVENT DATE: 20160111
